FAERS Safety Report 9557161 (Version 1)
Quarter: 2013Q3

REPORT INFORMATION
  Report Type: Spontaneous
  Country: US (occurrence: None)
  Receive Date: 20130724
  Receipt Date: 20130724
  Transmission Date: 20140515
  Serious: No
  Sender: FDA-Public Use
  Company Number: PHEH2013US009181

PATIENT
  Sex: Female
  Weight: 71.7 kg

DRUGS (13)
  1. GILENYA (FINGOLIMOD) CAPSULE [Suspect]
     Indication: MULTIPLE SCLEROSIS
     Route: 048
  2. AMPYRA (FAMPRIDINE) 10MG [Suspect]
     Route: 048
     Dates: start: 20110603
  3. DIAZEPAM [Concomitant]
  4. BACLOFEN [Concomitant]
  5. VESICARE (SOLIFENACIN SUCCINATE) [Concomitant]
  6. HYDROCHLOROTHIAZIDE [Concomitant]
  7. CYMBALTA (DULOXETINE HYDROCHLORIDE) [Concomitant]
  8. CALCIUM [Concomitant]
  9. GNC ULTA MEGA GOLD (ACETYLCYSTEIN, ASCORBIC ACID, CALCIUM, MAGNESIUM, RETINOL, SELENIUM, THIOCTIC ACID, TOCOPHEROL, VITAMIN B NOS, VITAMIN D NOS) [Concomitant]
  10. VIT C (ASCORBIC ACID, CALCIUM) [Concomitant]
  11. FISH OIL NATURE MADE (FISH OIL) [Concomitant]
  12. GINKO BILOBA [Concomitant]
  13. GARLIC (ALLIUM SATIVUM) [Concomitant]

REACTIONS (5)
  - Dermatitis [None]
  - Lymphocyte count decreased [None]
  - Xerosis [None]
  - Post inflammatory pigmentation change [None]
  - Pruritus [None]
